FAERS Safety Report 8664611 (Version 3)
Quarter: 2013Q2

REPORT INFORMATION
  Report Type: Spontaneous
  Country: IT (occurrence: IT)
  Receive Date: 20120713
  Receipt Date: 20130520
  Transmission Date: 20140414
  Serious: Yes (Other)
  Sender: FDA-Public Use
  Company Number: IT-JNJFOC-20120703801

PATIENT
  Age: 77 Year
  Sex: Female

DRUGS (2)
  1. REMINYL [Suspect]
     Indication: PRODUCT USED FOR UNKNOWN INDICATION
     Route: 048
     Dates: start: 20120706, end: 20120706
  2. CIPRALEX [Suspect]
     Indication: PRODUCT USED FOR UNKNOWN INDICATION
     Route: 048
     Dates: start: 20120706, end: 20120706

REACTIONS (3)
  - Sopor [Unknown]
  - Medication error [Unknown]
  - Wrong drug administered [Unknown]
